FAERS Safety Report 7816098-4 (Version None)
Quarter: 2011Q4

REPORT INFORMATION
  Report Type: 
  Country: None (occurrence: None)
  Receive Date: 20111015
  Receipt Date: 20111006
  Transmission Date: 20120403
  Serious: Yes (Other)
  Sender: FDA-Public Use
  Company Number: US-ASTRAZENECA-2011SE60564

PATIENT
  Age: 63 Year
  Sex: Female

DRUGS (2)
  1. ZESTRIL [Suspect]
     Route: 048
  2. ARIMIDEX [Suspect]
     Route: 048

REACTIONS (12)
  - BREAST CANCER RECURRENT [None]
  - BREAST CANCER [None]
  - SYSTEMIC LUPUS ERYTHEMATOSUS RASH [None]
  - TYPE 2 DIABETES MELLITUS [None]
  - DIABETIC NEUROPATHY [None]
  - DYSLIPIDAEMIA [None]
  - HYPERTENSION [None]
  - SEASONAL ALLERGY [None]
  - BREAST CANCER FEMALE [None]
  - SWELLING [None]
  - GASTROOESOPHAGEAL REFLUX DISEASE [None]
  - ANXIETY [None]
